FAERS Safety Report 23389864 (Version 3)
Quarter: 2024Q1

REPORT INFORMATION
  Report Type: Report from Study
  Country: IN (occurrence: IN)
  Receive Date: 20240111
  Receipt Date: 20240219
  Transmission Date: 20240410
  Serious: Yes (Hospitalization, Other)
  Sender: FDA-Public Use
  Company Number: IN-TAKEDA-2024TUS001272

PATIENT
  Age: 59 Year
  Sex: Female

DRUGS (1)
  1. VEDOLIZUMAB [Suspect]
     Active Substance: VEDOLIZUMAB
     Indication: Colitis ulcerative
     Dosage: 300 MILLIGRAM
     Route: 042

REACTIONS (9)
  - Haematochezia [Unknown]
  - Diarrhoea [Unknown]
  - Abdominal pain [Unknown]
  - Back pain [Unknown]
  - Nasopharyngitis [Unknown]
  - Frequent bowel movements [Unknown]
  - Mucous stools [Unknown]
  - Gastrointestinal motility disorder [Unknown]
  - Weight decreased [Unknown]

NARRATIVE: CASE EVENT DATE: 20240124
